FAERS Safety Report 16189103 (Version 2)
Quarter: 2019Q2

REPORT INFORMATION
  Report Type: Spontaneous
  Country: HU (occurrence: HU)
  Receive Date: 20190412
  Receipt Date: 20190502
  Transmission Date: 20190711
  Serious: Yes (Other)
  Sender: FDA-Public Use
  Company Number: HU-009507513-1904HUN003977

PATIENT
  Age: 51 Year
  Sex: Female

DRUGS (1)
  1. KEYTRUDA [Suspect]
     Active Substance: PEMBROLIZUMAB
     Indication: METASTATIC MALIGNANT MELANOMA
     Dosage: 200 MILLIGRAM, ONCE
     Dates: start: 20190402, end: 20190402

REACTIONS (6)
  - Dysphagia [Unknown]
  - Unresponsive to stimuli [Not Recovered/Not Resolved]
  - Intracranial pressure increased [Unknown]
  - Malignant neoplasm progression [Not Recovered/Not Resolved]
  - Mobility decreased [Unknown]
  - Feeding disorder [Unknown]

NARRATIVE: CASE EVENT DATE: 201904
